FAERS Safety Report 6846899-0 (Version None)
Quarter: 2010Q3

REPORT INFORMATION
  Report Type: 
  Country: None (occurrence: None)
  Receive Date: 20100715
  Receipt Date: 20070921
  Transmission Date: 20110219
  Serious: No
  Sender: FDA-Public Use
  Company Number: US-PFIZER INC-2007079858

PATIENT
  Sex: Male
  Weight: 108.9 kg

DRUGS (7)
  1. CHANTIX [Suspect]
     Indication: SMOKING CESSATION THERAPY
     Dates: start: 20070914
  2. INSULIN [Concomitant]
  3. SIMVASTATIN [Concomitant]
  4. ANTIHYPERTENSIVES [Concomitant]
     Indication: HYPERTENSION
  5. ALL OTHER THERAPEUTIC PRODUCTS [Concomitant]
  6. VICODIN [Concomitant]
  7. VALIUM [Concomitant]

REACTIONS (1)
  - DRUG INEFFECTIVE [None]
